FAERS Safety Report 11729553 (Version 1)
Quarter: 2015Q4

REPORT INFORMATION
  Report Type: Spontaneous
  Country: US (occurrence: US)
  Receive Date: 20151110
  Receipt Date: 20151110
  Transmission Date: 20160304
  Serious: Yes (Other)
  Sender: FDA-Public Use
  Company Number: US-ELI_LILLY_AND_COMPANY-US201111004514

PATIENT
  Age: 73 Year
  Sex: Female

DRUGS (5)
  1. ANTIHYPERTENSIVES [Concomitant]
     Active Substance: UNSPECIFIED INGREDIENT
     Indication: HYPERTENSION
  2. FORTEO [Suspect]
     Active Substance: TERIPARATIDE
     Indication: OSTEOPOROSIS
     Dosage: 20 UG, QD
     Dates: start: 20111024, end: 20111106
  3. ALEVE [Concomitant]
     Active Substance: NAPROXEN SODIUM
     Indication: PAIN
  4. FORTEO [Suspect]
     Active Substance: TERIPARATIDE
     Dosage: 20 UG, QD
  5. FORTEO [Suspect]
     Active Substance: TERIPARATIDE
     Dosage: 20 UG, QD
     Dates: start: 20111114

REACTIONS (16)
  - Heart rate increased [Unknown]
  - Malaise [Recovered/Resolved]
  - Arthralgia [Recovering/Resolving]
  - Blood pressure increased [Unknown]
  - Palpitations [Unknown]
  - Dizziness [Not Recovered/Not Resolved]
  - Pain [Unknown]
  - Vomiting [Not Recovered/Not Resolved]
  - Pain in extremity [Unknown]
  - Headache [Recovered/Resolved]
  - Muscular weakness [Unknown]
  - Feeling abnormal [Unknown]
  - Drug dose omission [Unknown]
  - Dry mouth [Not Recovered/Not Resolved]
  - Feeling hot [Unknown]
  - Nausea [Not Recovered/Not Resolved]

NARRATIVE: CASE EVENT DATE: 20111105
